FAERS Safety Report 24321991 (Version 1)
Quarter: 2024Q3

REPORT INFORMATION
  Report Type: Other
  Country: AE (occurrence: AE)
  Receive Date: 20240916
  Receipt Date: 20240916
  Transmission Date: 20241017
  Serious: Yes (Hospitalization, Other)
  Sender: BIONPHARMA
  Company Number: AE-Bion-013845

PATIENT
  Age: 6 Year
  Sex: Female

DRUGS (5)
  1. DEXAMETHASONE [Suspect]
     Active Substance: DEXAMETHASONE
     Indication: Immunosuppressant drug therapy
  2. FLUDARABINE [Concomitant]
     Active Substance: FLUDARABINE PHOSPHATE
     Indication: Immunosuppressant drug therapy
  3. THIOTEPA [Concomitant]
     Active Substance: THIOTEPA
     Indication: Immunosuppressant drug therapy
  4. TREOSULFAN [Concomitant]
     Active Substance: TREOSULFAN
     Indication: Immunosuppressant drug therapy
     Dosage: 14 G/M2
  5. THYMOCYTE IMMUNE GLOBULIN NOS [Concomitant]
     Active Substance: THYMOCYTE IMMUNE GLOBULIN NOS
     Indication: Immunosuppressant drug therapy

REACTIONS (1)
  - Human herpesvirus 6 encephalitis [Recovered/Resolved]
